FAERS Safety Report 9101195 (Version 1)
Quarter: 2013Q1

REPORT INFORMATION
  Report Type: Spontaneous
  Country: IN (occurrence: IN)
  Receive Date: 20130218
  Receipt Date: 20130218
  Transmission Date: 20140127
  Serious: Yes (Other)
  Sender: FDA-Public Use
  Company Number: IN-BAXTER-2013BAX005849

PATIENT
  Age: 55 Year
  Sex: Female

DRUGS (1)
  1. DIANEAL PD-2 [Suspect]
     Indication: PERITONEAL DIALYSIS
     Route: 033
     Dates: start: 20130204

REACTIONS (5)
  - Fungal peritonitis [Unknown]
  - Diarrhoea [Unknown]
  - Blood albumin decreased [Unknown]
  - Peritoneal dialysis complication [Unknown]
  - Candida infection [None]
